FAERS Safety Report 24939023 (Version 8)
Quarter: 2025Q4

REPORT INFORMATION
  Report Type: Spontaneous
  Country: US (occurrence: US)
  Receive Date: 20250206
  Receipt Date: 20251107
  Transmission Date: 20260118
  Serious: Yes (Other)
  Sender: PFIZER
  Company Number: US-PFIZER INC-PV202400102865

PATIENT
  Age: 81 Year
  Sex: Female

DRUGS (4)
  1. IBRANCE [Suspect]
     Active Substance: PALBOCICLIB
     Indication: Hormone receptor negative HER2 positive breast cancer
     Dosage: 100 MG
     Dates: start: 2018
  2. IBRANCE [Suspect]
     Active Substance: PALBOCICLIB
     Dosage: 75 MG, CYCLIC (ONCE DAILY FOR 14 DAYS ON THEN 14 DAYS OFF, TAKE WITH OR WITHOUT FOOD)
     Route: 048
  3. IBRANCE [Suspect]
     Active Substance: PALBOCICLIB
     Dosage: 100 MG, CYCLIC (DAILY FOR 14 DAYS ON THEN 14 DAYS OFF, TAKE WITH OR WITHOUT FOOD)
     Route: 048
     Dates: start: 20240828
  4. IBRANCE [Suspect]
     Active Substance: PALBOCICLIB
     Dosage: 100 MG, CYCLIC (ONCE DAILY FOR 14 DAYS ON AND 14 DAYS OFF WITH OR WITHOUT FOOD)
     Route: 048

REACTIONS (3)
  - Hormone receptor negative HER2 positive breast cancer [Unknown]
  - Malignant neoplasm progression [Unknown]
  - Off label use [Unknown]
